FAERS Safety Report 12701008 (Version 1)
Quarter: 2016Q3

REPORT INFORMATION
  Report Type: Spontaneous
  Country: US (occurrence: None)
  Receive Date: 20160830
  Receipt Date: 20160830
  Transmission Date: 20161109
  Serious: Yes (Other)
  Sender: FDA-Public Use
  Company Number: None

PATIENT
  Age: 14 Year
  Sex: Female
  Weight: 47.17 kg

DRUGS (1)
  1. BIOFREEZE ROLL-ON [Suspect]
     Active Substance: MENTHOL
     Indication: PAIN IN EXTREMITY
     Route: 061
     Dates: start: 20160826, end: 20160826

REACTIONS (2)
  - Chemical injury [None]
  - Application site burn [None]

NARRATIVE: CASE EVENT DATE: 20160826
